FAERS Safety Report 4715350-9 (Version None)
Quarter: 2005Q3

REPORT INFORMATION
  Report Type: 
  Country: None (occurrence: None)
  Receive Date: 20050715
  Receipt Date: 20050308
  Transmission Date: 20060218
  Serious: Yes (Hospitalization)
  Sender: FDA-Public Use
  Company Number: US-MERCK-0503USA01386

PATIENT
  Age: 67 Year
  Sex: Female
  Weight: 82 kg

DRUGS (1)
  1. VIOXX [Suspect]
     Indication: ARTHRITIS
     Route: 048
     Dates: start: 20030315, end: 20040323

REACTIONS (7)
  - BLOOD PRESSURE [None]
  - BLOOD PRESSURE INCREASED [None]
  - CATHETER SITE HAEMATOMA [None]
  - HAEMATOMA [None]
  - MYOCARDIAL INFARCTION [None]
  - SINUS TACHYCARDIA [None]
  - VASCULAR PSEUDOANEURYSM [None]
